FAERS Safety Report 16627637 (Version 3)
Quarter: 2019Q3

REPORT INFORMATION
  Report Type: Report from Study
  Country: US (occurrence: US)
  Receive Date: 20190724
  Receipt Date: 20190813
  Transmission Date: 20191004
  Serious: Yes (Death, Other)
  Sender: FDA-Public Use
  Company Number: US-GILEAD-2019-0419834

PATIENT
  Age: 80 Year
  Sex: Female

DRUGS (16)
  1. AZATHIOPRINE. [Concomitant]
     Active Substance: AZATHIOPRINE
  2. GABAPENTIN. [Concomitant]
     Active Substance: GABAPENTIN
  3. FOLIC ACID. [Concomitant]
     Active Substance: FOLIC ACID
  4. MELOXICAM. [Concomitant]
     Active Substance: MELOXICAM
  5. OMEPRAZOLE. [Concomitant]
     Active Substance: OMEPRAZOLE
  6. POTASSIUM CHLORIDE. [Concomitant]
     Active Substance: POTASSIUM CHLORIDE
  7. SULFASALAZINE. [Concomitant]
     Active Substance: SULFASALAZINE
  8. AMBRISENTAN [Suspect]
     Active Substance: AMBRISENTAN
     Indication: PULMONARY ARTERIAL HYPERTENSION
     Dosage: 5 MG, QD
     Route: 065
     Dates: start: 20140719
  9. PRAVASTATIN. [Concomitant]
     Active Substance: PRAVASTATIN
  10. ZYRTEC [Concomitant]
     Active Substance: CETIRIZINE HYDROCHLORIDE
  11. FERROUS SULFATE. [Concomitant]
     Active Substance: FERROUS SULFATE
  12. FUROSEMIDE. [Concomitant]
     Active Substance: FUROSEMIDE
  13. LISINOPRIL. [Concomitant]
     Active Substance: LISINOPRIL
  14. ASPIRIN (E.C.) [Concomitant]
     Active Substance: ASPIRIN
  15. METAMUCIL REGULAR [Concomitant]
     Active Substance: HERBALS\PLANTAGO OVATA LEAF
  16. METOPROLOL. [Concomitant]
     Active Substance: METOPROLOL

REACTIONS (2)
  - Off label use [Not Recovered/Not Resolved]
  - Sudden death [Fatal]
